FAERS Safety Report 10448308 (Version 2)
Quarter: 2014Q4

REPORT INFORMATION
  Report Type: Spontaneous
  Country: US (occurrence: US)
  Receive Date: 20140911
  Receipt Date: 20141016
  Transmission Date: 20150528
  Serious: Yes (Other)
  Sender: FDA-Public Use
  Company Number: US-GLAXOSMITHKLINE-A1088713A

PATIENT
  Sex: Male

DRUGS (3)
  1. RYTHMOL SR [Suspect]
     Active Substance: PROPAFENONE HYDROCHLORIDE
     Indication: CARDIAC DISORDER
     Dosage: 325 MG
     Dates: start: 20121020
  2. VENTOLIN HFA [Suspect]
     Active Substance: ALBUTEROL SULFATE
     Indication: ASTHMA
     Dosage: 90 MCG
     Dates: start: 20130815
  3. ADVAIR HFA [Suspect]
     Active Substance: FLUTICASONE PROPIONATE\SALMETEROL XINAFOATE
     Indication: ASTHMA
     Dosage: ^250^
     Dates: start: 20120714

REACTIONS (8)
  - Extrasystoles [Unknown]
  - Drug ineffective [Unknown]
  - Cardiac fibrillation [Unknown]
  - Anxiety [Unknown]
  - Parkinsonism [Unknown]
  - Stress [Unknown]
  - Condition aggravated [Unknown]
  - Blood pressure increased [Unknown]
